FAERS Safety Report 10100835 (Version 1)
Quarter: 2014Q2

REPORT INFORMATION
  Report Type: Report from Study
  Country: US (occurrence: US)
  Receive Date: 20140423
  Receipt Date: 20140423
  Transmission Date: 20141212
  Serious: Yes (Hospitalization, Other)
  Sender: FDA-Public Use
  Company Number: US-ABBVIE-14P-163-1226672-00

PATIENT
  Sex: Male
  Weight: 54.48 kg

DRUGS (5)
  1. HUMIRA [Suspect]
     Indication: CROHN^S DISEASE
     Dosage: INITIAL DOSE
     Route: 058
     Dates: start: 2012, end: 2012
  2. HUMIRA [Suspect]
     Dosage: ON DAY 15
     Route: 058
     Dates: start: 2012, end: 2012
  3. HUMIRA [Suspect]
     Route: 058
     Dates: start: 2012, end: 20130615
  4. HUMIRA [Suspect]
     Route: 058
     Dates: start: 201307, end: 201401
  5. BLOOD THINNER [Concomitant]
     Indication: PRODUCT USED FOR UNKNOWN INDICATION

REACTIONS (4)
  - Small intestinal obstruction [Recovered/Resolved]
  - Large intestinal stenosis [Recovered/Resolved]
  - Procedural pain [Recovered/Resolved]
  - Vomiting [Recovered/Resolved]
